FAERS Safety Report 19282957 (Version 1)
Quarter: 2021Q2

REPORT INFORMATION
  Report Type: Spontaneous
  Country: RO (occurrence: RO)
  Receive Date: 20210521
  Receipt Date: 20210521
  Transmission Date: 20210717
  Serious: Yes (Other)
  Sender: FDA-Public Use
  Company Number: RO-TERSERA THERAPEUTICS LLC-2021TRS002233

PATIENT

DRUGS (7)
  1. BICALUTAMIDE. [Suspect]
     Active Substance: BICALUTAMIDE
     Dosage: 50 MILLIGRAM, QD
     Route: 048
     Dates: start: 201409, end: 201809
  2. ELIGARD [Suspect]
     Active Substance: LEUPROLIDE ACETATE
     Indication: PROSTATE CANCER
     Dosage: 22.5 MILLIGRAM, EVERY THREE MONTHS
     Route: 065
  3. ZOLADEX [Suspect]
     Active Substance: GOSERELIN ACETATE
     Dosage: UNKNOWN DOSE AND FREQUENCY
     Route: 058
     Dates: start: 201409
  4. ZOLADEX [Suspect]
     Active Substance: GOSERELIN ACETATE
     Indication: PROSTATE CANCER
     Dosage: 10.8 DOSAGE FORM, EVERY THREE MONTHS
     Route: 058
  5. BICALUTAMIDE. [Suspect]
     Active Substance: BICALUTAMIDE
     Dosage: 50.0MG UNKNOWN
     Route: 048
  6. BICALUTAMIDE. [Suspect]
     Active Substance: BICALUTAMIDE
     Indication: PROSTATE CANCER
     Dosage: 150 MILLIGRAM, QD (DAILY)
     Route: 048
     Dates: start: 201201
  7. ENZALUTAMIDE [Concomitant]
     Active Substance: ENZALUTAMIDE
     Indication: PROSTATE CANCER
     Dosage: UNKNOWN DOSE AND FREQUENCY
     Route: 065
     Dates: start: 202012

REACTIONS (2)
  - Osteolysis [Unknown]
  - Prostate cancer [Unknown]
